FAERS Safety Report 7483853-2 (Version None)
Quarter: 2011Q2

REPORT INFORMATION
  Report Type: 
  Country: None (occurrence: None)
  Receive Date: 20110501
  Receipt Date: 20110501
  Transmission Date: 20111010
  Serious: Yes (Hospitalization, Other)
  Sender: FDA-Public Use
  Company Number: None

PATIENT
  Age: 68 Year
  Sex: Female
  Weight: 91.6 kg

DRUGS (17)
  1. HYDROCODONE BITARTRATE [Concomitant]
  2. ASCORBIC ACID [Concomitant]
  3. ATIVAN [Concomitant]
  4. VITAMIN B COMPLEX CAP [Concomitant]
  5. RAD001 (EVEROLIMUS) [Suspect]
     Indication: COLORECTAL CANCER
     Dosage: 10 MG PO QD
     Route: 048
     Dates: start: 20110504, end: 20110509
  6. DILTIAZEM CD [Concomitant]
  7. CALCIUM D [Concomitant]
  8. MULTI-VITAMIN [Concomitant]
  9. VITAMIN E [Concomitant]
  10. COLACE [Concomitant]
  11. LISINOPRIL [Concomitant]
  12. OMEPRAZOLE [Concomitant]
  13. ENOXAPARIN [Concomitant]
  14. AV-951 (TIVOZANIB) [Suspect]
     Indication: COLORECTAL CANCER
     Dosage: 1 MG PO QD FOR 21 DAYS
     Route: 048
     Dates: start: 20110504, end: 20110509
  15. ATENOLOL [Concomitant]
  16. ZOFRAN [Concomitant]
  17. FERROUS SULFATE TAB [Concomitant]

REACTIONS (2)
  - URINARY TRACT INFECTION [None]
  - PYELONEPHRITIS [None]
